FAERS Safety Report 23461270 (Version 1)
Quarter: 2024Q1

REPORT INFORMATION
  Report Type: Spontaneous
  Country: SE (occurrence: SE)
  Receive Date: 20240131
  Receipt Date: 20240131
  Transmission Date: 20240410
  Serious: Yes (Hospitalization, Other)
  Sender: FDA-Public Use
  Company Number: SE-TEVA-VS-3150447

PATIENT
  Sex: Male

DRUGS (2)
  1. TRAMADOL [Suspect]
     Active Substance: TRAMADOL\TRAMADOL HYDROCHLORIDE
     Indication: Drug abuse
     Route: 065
  2. NITROUS OXIDE [Suspect]
     Active Substance: NITROUS OXIDE
     Indication: Drug abuse
     Dosage: ADMINISTERED SIX 615G CYLINDERS DAILY I.E. 1860L DAILY
     Route: 055

REACTIONS (6)
  - Drug dependence [Unknown]
  - Toxicity to various agents [Recovering/Resolving]
  - Drug abuse [Recovering/Resolving]
  - Bone marrow failure [Unknown]
  - Neuropathy vitamin B12 deficiency [Recovering/Resolving]
  - Iron deficiency anaemia [Unknown]
